FAERS Safety Report 12809578 (Version 2)
Quarter: 2016Q4

REPORT INFORMATION
  Report Type: Spontaneous
  Country: ZA (occurrence: ZA)
  Receive Date: 20161005
  Receipt Date: 20161006
  Transmission Date: 20170207
  Serious: Yes (Hospitalization)
  Sender: FDA-Public Use
  Company Number: ZA-ROCHE-1836525

PATIENT
  Sex: Female

DRUGS (1)
  1. MABTHERA [Suspect]
     Active Substance: RITUXIMAB
     Indication: SYSTEMIC LUPUS ERYTHEMATOSUS
     Route: 042
     Dates: start: 20160909

REACTIONS (12)
  - Oedema [Recovered/Resolved]
  - White blood cell count decreased [Recovering/Resolving]
  - Serum sickness [Unknown]
  - Headache [Recovering/Resolving]
  - Complement factor C4 decreased [Unknown]
  - C-reactive protein increased [Unknown]
  - Complement factor C3 decreased [Unknown]
  - Off label use [Unknown]
  - Nausea [Recovered/Resolved]
  - Abdominal pain [Unknown]
  - Platelet count decreased [Recovered/Resolved]
  - Rash morbilliform [Recovered/Resolved]
